FAERS Safety Report 6396716-0 (Version None)
Quarter: 2009Q4

REPORT INFORMATION
  Report Type: 
  Country: None (occurrence: None)
  Receive Date: 20091008
  Receipt Date: 20091008
  Transmission Date: 20100525
  Serious: Yes (Life-Threatening, Disabling)
  Sender: FDA-Public Use
  Company Number: None

PATIENT
  Age: 71 Year
  Sex: Female
  Weight: 57.6068 kg

DRUGS (1)
  1. ACTONEL [Suspect]
     Indication: OSTEOPENIA
     Dosage: ONE PILL PER MONTH
     Dates: start: 20090804, end: 20091004

REACTIONS (6)
  - DEHYDRATION [None]
  - GASTROENTERITIS [None]
  - HYPOTENSION [None]
  - LIGAMENT PAIN [None]
  - MYALGIA [None]
  - ULCER [None]
